FAERS Safety Report 6712635-1 (Version None)
Quarter: 2010Q2

REPORT INFORMATION
  Report Type: 
  Country: None (occurrence: None)
  Receive Date: 20100506
  Receipt Date: 20100426
  Transmission Date: 20101027
  Serious: Yes (Hospitalization, Other)
  Sender: FDA-Public Use
  Company Number: MX-JNJFOC-20100407692

PATIENT
  Sex: Male

DRUGS (1)
  1. CAELYX [Suspect]
     Indication: HODGKIN'S DISEASE
     Route: 042

REACTIONS (3)
  - OFF LABEL USE [None]
  - PALMAR-PLANTAR ERYTHRODYSAESTHESIA SYNDROME [None]
  - RESPIRATORY FAILURE [None]
